FAERS Safety Report 7018163-0 (Version None)
Quarter: 2010Q3

REPORT INFORMATION
  Report Type: 
  Country: None (occurrence: None)
  Receive Date: 20100928
  Receipt Date: 20100924
  Transmission Date: 20110219
  Serious: Yes (Hospitalization, Disabling)
  Sender: FDA-Public Use
  Company Number: US-ROXANE LABORATORIES, INC.-2010-RO-01139RO

PATIENT
  Sex: Female
  Weight: 65 kg

DRUGS (61)
  1. DEXAMETHASONE [Suspect]
     Indication: ACUTE LYMPHOCYTIC LEUKAEMIA
     Dates: start: 20060101
  2. DEXAMETHASONE [Suspect]
     Route: 048
     Dates: start: 20060101, end: 20061101
  3. MERCAPTOPURINE [Suspect]
     Indication: CHEMOTHERAPY
     Dosage: 100 MG
     Route: 048
  4. MERCAPTOPURINE [Suspect]
     Dosage: 125 MG
  5. MERCAPTOPURINE [Suspect]
     Dosage: 75 MG
  6. MERCAPTOPURINE [Suspect]
     Dosage: 50 MG
  7. MERCAPTOPURINE [Suspect]
  8. MERCAPTOPURINE [Suspect]
     Dosage: 100 MG
  9. MERCAPTOPURINE [Suspect]
  10. METHOTREXATE [Suspect]
     Indication: CHEMOTHERAPY
  11. METHOTREXATE [Suspect]
  12. METHOTREXATE [Suspect]
  13. LEVETIRACETAM [Suspect]
     Dates: start: 20060101
  14. DECADRON [Suspect]
     Indication: ACUTE LYMPHOCYTIC LEUKAEMIA
     Route: 037
     Dates: start: 20060101
  15. DECADRON [Suspect]
     Indication: HEADACHE
     Dosage: 18 MG
     Dates: start: 20060101
  16. DECADRON [Suspect]
  17. DECADRON [Suspect]
     Dosage: 2 MG
     Dates: start: 20060926, end: 20060927
  18. DECADRON [Suspect]
     Dates: end: 20061101
  19. METHOTREXATE [Suspect]
     Route: 037
  20. METHOTREXATE [Suspect]
     Route: 042
  21. PENTAMIDINE ISETHIONATE [Concomitant]
     Indication: PNEUMOCYSTIS JIROVECI PNEUMONIA
     Route: 055
  22. VINCRISTINE [Concomitant]
     Indication: CHEMOTHERAPY
     Route: 042
  23. IMMUNE GLOBULIN INTRAVENOUS (HUMAN) [Concomitant]
     Indication: CHEMOTHERAPY
     Route: 042
  24. NEURONTIN [Concomitant]
     Indication: PAIN
     Dates: end: 20080401
  25. KEPPRA [Concomitant]
     Indication: NERVOUS SYSTEM DISORDER
  26. OXYCONTIN [Concomitant]
     Indication: PAIN
     Dosage: 20 MG
     Route: 048
     Dates: start: 20080225
  27. PRILOSEC [Concomitant]
  28. CELEBREX [Concomitant]
     Indication: PAIN
     Dates: start: 20061101
  29. CYMBALTA [Concomitant]
     Dosage: 60 MG
  30. PAMIDRONATE DISODIUM [Concomitant]
     Indication: BONE PAIN
     Dates: start: 20061101
  31. PERCOCET [Concomitant]
     Indication: PAIN
     Dates: start: 20080201
  32. TORADOL [Concomitant]
     Indication: PAIN
     Dates: start: 20061101
  33. TORADOL [Concomitant]
     Route: 042
     Dates: start: 20080201
  34. LORTAB [Concomitant]
     Indication: PAIN
     Dates: start: 20061101
  35. BACTRIM [Concomitant]
     Indication: PNEUMOCYSTIS JIROVECI PNEUMONIA
  36. IBUPROFEN [Concomitant]
     Indication: PAIN
     Route: 048
  37. BENADRYL [Concomitant]
     Route: 048
  38. TYLENOL [Concomitant]
     Indication: PAIN
  39. SOLU-CORTEF [Concomitant]
     Route: 042
  40. CORTEF [Concomitant]
  41. FLU SHOT [Concomitant]
     Indication: PROPHYLAXIS
  42. KYTRIL [Concomitant]
  43. CYTARABINE [Concomitant]
  44. THIOGUANINE [Concomitant]
  45. PEG ASPARAGINASE [Concomitant]
  46. DOXORUBICIN HCL [Concomitant]
  47. ARA-C [Concomitant]
  48. ROCEPHIN [Concomitant]
  49. OMNICEF [Concomitant]
     Dosage: 600 MG
  50. HYDROCORTISONE [Concomitant]
     Dosage: 30 MG
  51. HYDROCORTISONE [Concomitant]
     Dosage: 15 MG
  52. LEXAPRO [Concomitant]
  53. ACYCLOVIR SODIUM [Concomitant]
  54. PREVACID [Concomitant]
  55. TRILEPTAL [Concomitant]
  56. ZOFRAN [Concomitant]
  57. ATIVAN [Concomitant]
  58. DAUNOMYCIN [Concomitant]
  59. DIFLUCAN [Concomitant]
     Dosage: 200 MG
  60. CYCLOPHOSPHAMIDE [Concomitant]
     Route: 042
  61. CYTOXAN [Concomitant]

REACTIONS (16)
  - ARTHRALGIA [None]
  - ARTHROPATHY [None]
  - BONE INFARCTION [None]
  - BONE PAIN [None]
  - DECREASED APPETITE [None]
  - GAIT DISTURBANCE [None]
  - HEADACHE [None]
  - IMPAIRED WORK ABILITY [None]
  - JOINT DESTRUCTION [None]
  - JOINT EFFUSION [None]
  - NERVOUS SYSTEM DISORDER [None]
  - NEUTROPHIL COUNT DECREASED [None]
  - OSTEONECROSIS [None]
  - PAIN [None]
  - SLEEP DISORDER DUE TO A GENERAL MEDICAL CONDITION [None]
  - TOOTHACHE [None]
